FAERS Safety Report 21110650 (Version 1)
Quarter: 2022Q3

REPORT INFORMATION
  Report Type: Spontaneous
  Country: TW (occurrence: TW)
  Receive Date: 20220721
  Receipt Date: 20220721
  Transmission Date: 20221027
  Serious: Yes (Hospitalization, Other)
  Sender: FDA-Public Use
  Company Number: TW-MLMSERVICE-2022071136612781

PATIENT
  Age: 62 Year
  Sex: Male

DRUGS (6)
  1. ARIPIPRAZOLE [Suspect]
     Active Substance: ARIPIPRAZOLE
     Indication: Delirium tremens
  2. ESTAZOLAM [Suspect]
     Active Substance: ESTAZOLAM
     Indication: Delirium tremens
  3. LORAZEPAM [Suspect]
     Active Substance: LORAZEPAM
     Indication: Delirium tremens
  4. VALPROIC ACID [Concomitant]
     Active Substance: VALPROIC ACID
  5. ESTAZOLAM [Suspect]
     Active Substance: ESTAZOLAM
     Indication: Delirium tremens
     Dosage: DOSE UPTITRATION
  6. LORAZEPAM [Suspect]
     Active Substance: LORAZEPAM
     Indication: Delirium tremens
     Dosage: DOSE UPTITRATION

REACTIONS (6)
  - Delirium [Recovering/Resolving]
  - Sedation [Recovering/Resolving]
  - Extrapyramidal disorder [Recovering/Resolving]
  - Condition aggravated [Recovering/Resolving]
  - Pneumonia aspiration [Recovering/Resolving]
  - Somnolence [Recovering/Resolving]
